FAERS Safety Report 4331352-9 (Version None)
Quarter: 2004Q1

REPORT INFORMATION
  Report Type: 
  Country: None (occurrence: None)
  Receive Date: 20040331
  Receipt Date: 20040319
  Transmission Date: 20041129
  Serious: Yes (Death, Life-Threatening)
  Sender: FDA-Public Use
  Company Number: 2003AP02565

PATIENT
  Age: 80 Year
  Sex: Male

DRUGS (14)
  1. IRESSA [Suspect]
     Indication: NON-SMALL CELL LUNG CANCER
     Dosage: 250 MG DAILY PO
     Route: 048
     Dates: start: 20030621, end: 20030714
  2. DIPYRIDAMOLE [Concomitant]
  3. BISOLVON [Concomitant]
  4. HERBESSER ^DELTA^ [Concomitant]
  5. HOKUNALIN [Concomitant]
  6. FRANDOL [Concomitant]
  7. THEO-DUR [Concomitant]
  8. ZYLORIC ^FAES^ [Concomitant]
  9. HARNAL [Concomitant]
  10. PANTOSIN [Concomitant]
  11. MAGNESIUM OXIDE [Concomitant]
  12. TERSIGAN [Concomitant]
  13. LOXONIN [Concomitant]
  14. SELBEX [Concomitant]

REACTIONS (3)
  - HAEMOPTYSIS [None]
  - INTERSTITIAL LUNG DISEASE [None]
  - RESPIRATORY FAILURE [None]
